FAERS Safety Report 5766466-X (Version None)
Quarter: 2008Q2

REPORT INFORMATION
  Report Type: 
  Country: None (occurrence: None)
  Receive Date: 20080606
  Receipt Date: 20080603
  Transmission Date: 20081010
  Serious: Yes (Life-Threatening, Other)
  Sender: FDA-Public Use
  Company Number: JHP200800165

PATIENT
  Age: 42 Year
  Sex: Female

DRUGS (3)
  1. EPINEPHRINE [Suspect]
     Indication: HAEMORRHAGE
     Dosage: 1 MG, IN WETTING SOLUTION OF 200ML OF NORMAL SALINE, SUBCUTANEOS
  2. ANESTHETICS NOS [Concomitant]
  3. PROPOFOL [Concomitant]

REACTIONS (3)
  - ATRIAL FIBRILLATION [None]
  - CORONARY ARTERY STENOSIS [None]
  - MYOCARDIAL INFARCTION [None]
